FAERS Safety Report 10969218 (Version 2)
Quarter: 2015Q2

REPORT INFORMATION
  Report Type: Spontaneous
  Country: IL (occurrence: IL)
  Receive Date: 20150331
  Receipt Date: 20150415
  Transmission Date: 20150821
  Serious: Yes (Death, Other)
  Sender: FDA-Public Use
  Company Number: PHHY2015IL036793

PATIENT
  Age: 68 Year
  Sex: Male

DRUGS (1)
  1. DESFERAL [Suspect]
     Active Substance: DEFEROXAMINE MESYLATE
     Indication: MYELODYSPLASTIC SYNDROME
     Dosage: 1000 MG, QD,
     Route: 065

REACTIONS (2)
  - Escherichia infection [Fatal]
  - Sepsis [Unknown]

NARRATIVE: CASE EVENT DATE: 20150111
